FAERS Safety Report 23808305 (Version 1)
Quarter: 2024Q2

REPORT INFORMATION
  Report Type: Spontaneous
  Country: US (occurrence: None)
  Receive Date: 20240501
  Receipt Date: 20240501
  Transmission Date: 20240716
  Serious: Yes (Other)
  Sender: FDA-Public Use
  Company Number: None

PATIENT
  Age: 21 Year
  Sex: Male
  Weight: 66 kg

DRUGS (3)
  1. CABENUVA [Suspect]
     Active Substance: CABOTEGRAVIR\RILPIVIRINE
     Indication: HIV infection
     Dosage: OTHER FREQUENCY : EVERY 8 WEEKS;?
     Route: 030
     Dates: start: 20231219
  2. ADDERALL [Concomitant]
     Active Substance: AMPHETAMINE ASPARTATE\AMPHETAMINE SULFATE\DEXTROAMPHETAMINE SACCHARATE\DEXTROAMPHETAMINE SULFATE
  3. VITAMIN D [Concomitant]
     Active Substance: VITAMIN D NOS

REACTIONS (17)
  - Chest discomfort [None]
  - Dyspnoea [None]
  - Cough [None]
  - Swelling face [None]
  - Anxiety [None]
  - Tunnel vision [None]
  - Feeling abnormal [None]
  - Abdominal pain upper [None]
  - Hyperhidrosis [None]
  - Hypoaesthesia oral [None]
  - Back pain [None]
  - Feeling hot [None]
  - Rash [None]
  - Dizziness [None]
  - Syncope [None]
  - Blood pressure fluctuation [None]
  - Anaphylactic reaction [None]

NARRATIVE: CASE EVENT DATE: 20240416
